FAERS Safety Report 15736224 (Version 2)
Quarter: 2019Q2

REPORT INFORMATION
  Report Type: Report from Study
  Country: US (occurrence: US)
  Receive Date: 20181218
  Receipt Date: 20190517
  Transmission Date: 20190711
  Serious: No
  Sender: FDA-Public Use
  Company Number: PHEH2018US052387

PATIENT
  Age: 62 Year
  Sex: Female

DRUGS (2)
  1. ZORTRESS [Suspect]
     Active Substance: EVEROLIMUS
     Route: 048
  2. MYFORTIC [Suspect]
     Active Substance: MYCOPHENOLATE SODIUM
     Indication: TRANSPLANT
     Dosage: 720 MG, BID
     Route: 048

REACTIONS (8)
  - Hypoacusis [Unknown]
  - Rash [Unknown]
  - Hand fracture [Unknown]
  - Fall [Unknown]
  - Lower limb fracture [Unknown]
  - Wrist fracture [Unknown]
  - Wound [Unknown]
  - Upper limb fracture [Unknown]

NARRATIVE: CASE EVENT DATE: 20190319
